FAERS Safety Report 18807710 (Version 1)
Quarter: 2021Q1

REPORT INFORMATION
  Report Type: Other
  Country: DE (occurrence: DE)
  Receive Date: 20210129
  Receipt Date: 20210129
  Transmission Date: 20210419
  Serious: Yes (Hospitalization)
  Sender: FDA-Public Use
  Company Number: DE-MACLEODS PHARMACEUTICALS US LTD-MAC2021029908

PATIENT

DRUGS (1)
  1. SILDENAFIL. [Suspect]
     Active Substance: SILDENAFIL
     Indication: PRODUCT USED FOR UNKNOWN INDICATION
     Dosage: UNK, INGESTION 30102020 AND 31102020
     Route: 065

REACTIONS (5)
  - Syncope [Unknown]
  - Vision blurred [Unknown]
  - Chills [Unknown]
  - Tremor [Unknown]
  - Dizziness [Unknown]
